FAERS Safety Report 5116732-6 (Version None)
Quarter: 2006Q3

REPORT INFORMATION
  Report Type: 
  Country: None (occurrence: None)
  Receive Date: 20060925
  Receipt Date: 20060913
  Transmission Date: 20061208
  Serious: Yes (Death, Life-Threatening)
  Sender: FDA-Public Use
  Company Number: GXKR2006US05683

PATIENT
  Age: 62 Year
  Sex: Male

DRUGS (7)
  1. CARBOPLATIN [Suspect]
     Indication: NON-SMALL CELL LUNG CANCER
     Dosage: 3 COURSES, INTRAVENOUS
     Route: 042
  2. CISPLATIN [Suspect]
     Indication: NON-SMALL CELL LUNG CANCER
     Dosage: 2 COURSES OF 60 MG/MA2, INTRAVENOUS
     Route: 042
  3. ETOPOSIDE [Suspect]
     Indication: NON-SMALL CELL LUNG CANCER
     Dosage: 2 COURSES OF 120 MG/MA2, INTRAVENOUS
     Route: 042
  4. PACLITAXEL [Suspect]
     Indication: NON-SMALL CELL LUNG CANCER
     Dosage: 175 MG/M2, 3 COURSES, INTRAVENOUS
     Route: 042
  5. DOCETAXEL                        (DOCETAXEL) [Suspect]
     Indication: NON-SMALL CELL LUNG CANCER
     Dosage: 60 MG/M2, 6 COURSES, INTRAVENOUS
     Route: 042
  6. GEMCITABINE [Suspect]
     Dosage: 1000 MG/M2, 6 COURSES, INTRAVENOUS
     Route: 042
  7. RADIATION THERAPY                     (NO INGREDIENTS/SUBSTANCES) [Suspect]
     Indication: NON-SMALL CELL LUNG CANCER
     Dosage: 64 GY,

REACTIONS (6)
  - CHRONIC MYELOMONOCYTIC LEUKAEMIA [None]
  - DISEASE PROGRESSION [None]
  - MARROW HYPERPLASIA [None]
  - METASTASES TO ABDOMINAL CAVITY [None]
  - METASTASES TO LUNG [None]
  - TRISOMY 8 [None]
